FAERS Safety Report 20336078 (Version 1)
Quarter: 2022Q1

REPORT INFORMATION
  Report Type: Spontaneous
  Country: CN (occurrence: CN)
  Receive Date: 20220114
  Receipt Date: 20220114
  Transmission Date: 20220423
  Serious: Yes (Life-Threatening, Other)
  Sender: FDA-Public Use
  Company Number: CN-009507513-2201CHN001969

PATIENT
  Age: 64 Year
  Sex: Female
  Weight: 50 kg

DRUGS (3)
  1. KEYTRUDA [Suspect]
     Active Substance: PEMBROLIZUMAB
     Indication: Hepatic cancer
     Dosage: 200 MG, EVERY 21 DAYS
     Route: 041
     Dates: start: 20210816, end: 20211108
  2. TEGAFUR [Concomitant]
     Active Substance: TEGAFUR
     Indication: Hepatic cancer
     Dosage: 40 MG(THE DOSE WAS CHANGED TO 60 MG ON SECOND CYCLE), BID(DAY1-DAY 4)(EVERY 21 DAYS)
     Route: 048
     Dates: start: 20210816, end: 20211108
  3. PACLITAXEL [Concomitant]
     Active Substance: PACLITAXEL
     Indication: Hepatic cancer
     Dosage: 300 MG(200 MG ON DAYS1+100 MG ON DAY8), EVERY 21 DAYS
     Route: 041
     Dates: start: 20210816, end: 20211108

REACTIONS (3)
  - Hepatic failure [Recovering/Resolving]
  - Malignant neoplasm progression [Unknown]
  - Product use in unapproved indication [Unknown]

NARRATIVE: CASE EVENT DATE: 20210816
